FAERS Safety Report 6264587-9 (Version None)
Quarter: 2009Q3

REPORT INFORMATION
  Report Type: 
  Country: None (occurrence: None)
  Receive Date: 20090710
  Receipt Date: 20090701
  Transmission Date: 20100115
  Serious: Yes (Other)
  Sender: FDA-Public Use
  Company Number: PHHY2009JP26918

PATIENT
  Age: 30 Year
  Sex: Male

DRUGS (6)
  1. CYCLOSPORINE [Suspect]
     Indication: APLASTIC ANAEMIA
     Dosage: UNK
  2. CYCLOSPORINE [Suspect]
     Indication: ALLOGENIC BONE MARROW TRANSPLANTATION THERAPY
  3. METHYLPREDNISOLONE [Concomitant]
  4. ANTILYMPHOCYTE IMMUNOGLOBULIN (HORSE) [Concomitant]
  5. METENOLONE ACETATE [Concomitant]
  6. G-CSF [Concomitant]
     Indication: FEBRILE NEUTROPENIA

REACTIONS (4)
  - BILE DUCT STONE [None]
  - BILIARY SPHINCTEROTOMY [None]
  - CHOLANGITIS SUPPURATIVE [None]
  - CHOLELITHIASIS [None]
